FAERS Safety Report 4266967-X (Version None)
Quarter: 2004Q1

REPORT INFORMATION
  Report Type: 
  Country: None (occurrence: None)
  Receive Date: 20040107
  Receipt Date: 20031222
  Transmission Date: 20041129
  Serious: Yes (Other)
  Sender: FDA-Public Use
  Company Number: GB-SHR-03-018976

PATIENT
  Age: 27 Year
  Sex: Female
  Weight: 56 kg

DRUGS (1)
  1. MIRENA [Suspect]
     Dosage: 20 UG, CONT, INTRA-UTERINE
     Route: 015
     Dates: start: 20031016

REACTIONS (2)
  - MENORRHAGIA [None]
  - SUPPRESSED LACTATION [None]
